FAERS Safety Report 6383454-3 (Version None)
Quarter: 2009Q4

REPORT INFORMATION
  Report Type: 
  Country: None (occurrence: None)
  Receive Date: 20091001
  Receipt Date: 20090923
  Transmission Date: 20100525
  Serious: Yes (Hospitalization)
  Sender: FDA-Public Use
  Company Number: PHHY2009DE41022

PATIENT
  Age: 78 Year
  Sex: Male

DRUGS (1)
  1. EXELON [Suspect]
     Dosage: 4.6 MG/24 HOUR
     Route: 062

REACTIONS (3)
  - AGITATION [None]
  - CONFUSIONAL STATE [None]
  - MEMORY IMPAIRMENT [None]
